FAERS Safety Report 25521752 (Version 1)
Quarter: 2025Q3

REPORT INFORMATION
  Report Type: Report from Study
  Country: US (occurrence: US)
  Receive Date: 20250706
  Receipt Date: 20250706
  Transmission Date: 20251020
  Serious: Yes (Other)
  Sender: JOHNSON AND JOHNSON
  Company Number: US-JNJFOC-20250701507

PATIENT

DRUGS (1)
  1. TECVAYLI [Suspect]
     Active Substance: TECLISTAMAB-CQYV
     Indication: Product used for unknown indication
     Dates: start: 20230710

REACTIONS (4)
  - Cytopenia [Unknown]
  - Neutropenia [Unknown]
  - Disease progression [Unknown]
  - Rhinovirus infection [Unknown]
